FAERS Safety Report 6905527-6 (Version None)
Quarter: 2010Q3

REPORT INFORMATION
  Report Type: 
  Country: None (occurrence: None)
  Receive Date: 20100804
  Receipt Date: 20100723
  Transmission Date: 20110219
  Serious: Yes (Hospitalization, Disabling, Other)
  Sender: FDA-Public Use
  Company Number: US-PFIZER INC-2010045823

PATIENT
  Sex: Female

DRUGS (3)
  1. CHANTIX [Suspect]
     Indication: SMOKING CESSATION THERAPY
     Dosage: STARTER PACK
     Dates: start: 20061223, end: 20070108
  2. ZONISAMIDE [Concomitant]
     Indication: EPILEPSY
     Dosage: UNK
     Dates: start: 20000101, end: 20080101
  3. PRIMIDONE [Concomitant]
     Dosage: UNK
     Dates: start: 19900101

REACTIONS (8)
  - CERVICAL VERTEBRAL FRACTURE [None]
  - HEADACHE [None]
  - INJURY [None]
  - LOSS OF CONSCIOUSNESS [None]
  - MENTAL DISORDER [None]
  - MUSCULOSKELETAL DISCOMFORT [None]
  - NECK PAIN [None]
  - ROAD TRAFFIC ACCIDENT [None]
